FAERS Safety Report 13902184 (Version 1)
Quarter: 2017Q3

REPORT INFORMATION
  Report Type: Spontaneous
  Country: US (occurrence: US)
  Receive Date: 20170824
  Receipt Date: 20170824
  Transmission Date: 20171127
  Serious: Yes (Other)
  Sender: FDA-Public Use
  Company Number: US-ROCHE-1130216

PATIENT
  Age: 70 Year
  Sex: Female

DRUGS (17)
  1. BENADRYL [Concomitant]
     Active Substance: DIPHENHYDRAMINE HYDROCHLORIDE
     Route: 042
  2. PROCRIT [Concomitant]
     Active Substance: ERYTHROPOIETIN
     Route: 042
  3. ATENOLOL. [Concomitant]
     Active Substance: ATENOLOL
     Indication: HYPERTENSION
     Route: 065
  4. HCTZ [Concomitant]
     Active Substance: HYDROCHLOROTHIAZIDE
     Route: 065
  5. TAXOL [Suspect]
     Active Substance: PACLITAXEL
     Indication: PRODUCT USED FOR UNKNOWN INDICATION
     Dosage: 500 CC NS
     Route: 065
  6. PRINIVIL [Concomitant]
     Active Substance: LISINOPRIL
     Route: 048
  7. PROCRIT [Concomitant]
     Active Substance: ERYTHROPOIETIN
     Route: 042
  8. MACROBID [Concomitant]
     Active Substance: NITROFURANTOIN\NITROFURANTOIN MONOHYDRATE
  9. DECADRON [Concomitant]
     Active Substance: DEXAMETHASONE
     Route: 042
  10. PEPCID [Concomitant]
     Active Substance: FAMOTIDINE
     Route: 048
  11. ANZEMET [Concomitant]
     Active Substance: DOLASETRON MESYLATE
     Route: 042
  12. TRIAMTERENE. [Concomitant]
     Active Substance: TRIAMTERENE
     Route: 065
  13. LASIX [Concomitant]
     Active Substance: FUROSEMIDE
     Route: 065
  14. COUMADIN [Concomitant]
     Active Substance: WARFARIN SODIUM
     Route: 065
  15. COUMADIN [Concomitant]
     Active Substance: WARFARIN SODIUM
     Route: 065
  16. AMIFOSTINE. [Concomitant]
     Active Substance: AMIFOSTINE
     Route: 042
  17. HERCEPTIN [Suspect]
     Active Substance: TRASTUZUMAB
     Indication: BREAST CANCER
     Route: 065

REACTIONS (13)
  - Subclavian vein thrombosis [Unknown]
  - Oedema [Not Recovered/Not Resolved]
  - Abdominal distension [Unknown]
  - Cardiac failure congestive [Unknown]
  - Neuropathy peripheral [Unknown]
  - Hypoaesthesia [Not Recovered/Not Resolved]
  - Peripheral swelling [Unknown]
  - Allergic hepatitis [Recovered/Resolved]
  - Nephrotic syndrome [Unknown]
  - Anaemia [Unknown]
  - Joint swelling [Recovering/Resolving]
  - Dysuria [Recovered/Resolved]
  - Limb discomfort [Unknown]
